FAERS Safety Report 4580454-0 (Version None)
Quarter: 2005Q1

REPORT INFORMATION
  Report Type: 
  Country: None (occurrence: None)
  Receive Date: 20050214
  Receipt Date: 20040120
  Transmission Date: 20050727
  Serious: Yes (Hospitalization)
  Sender: FDA-Public Use
  Company Number: US-GLAXOSMITHKLINE-A0495823A

PATIENT
  Age: 40 Year
  Sex: Female

DRUGS (1)
  1. LAMICTAL [Suspect]
     Indication: BIPOLAR DISORDER
     Dosage: 200MG PER DAY
     Route: 048
     Dates: start: 20031201, end: 20040105

REACTIONS (9)
  - ALOPECIA [None]
  - DERMATITIS EXFOLIATIVE [None]
  - DIZZINESS [None]
  - ERYTHEMA [None]
  - FATIGUE [None]
  - LYMPHADENOPATHY [None]
  - PRURITUS [None]
  - TOXIC EPIDERMAL NECROLYSIS [None]
  - VISION BLURRED [None]
